FAERS Safety Report 6864021-1 (Version None)
Quarter: 2010Q3

REPORT INFORMATION
  Report Type: 
  Country: None (occurrence: None)
  Receive Date: 20100721
  Receipt Date: 20080313
  Transmission Date: 20110219
  Serious: Yes (Other)
  Sender: FDA-Public Use
  Company Number: US-PFIZER INC-2008023741

PATIENT
  Sex: Female
  Weight: 78.181 kg

DRUGS (4)
  1. CHANTIX [Suspect]
     Indication: SMOKING CESSATION THERAPY
     Route: 048
     Dates: start: 20080101, end: 20080201
  2. PAXIL [Concomitant]
     Indication: DEPRESSION
  3. BUSPAR [Concomitant]
     Indication: DEPRESSION
  4. XANAX [Concomitant]
     Indication: ANXIETY

REACTIONS (6)
  - ABNORMAL DREAMS [None]
  - FEELING ABNORMAL [None]
  - MENTAL DISORDER [None]
  - NAUSEA [None]
  - SUICIDAL IDEATION [None]
  - VOMITING [None]
